FAERS Safety Report 8009261-3 (Version None)
Quarter: 2011Q4

REPORT INFORMATION
  Report Type: 
  Country: None (occurrence: None)
  Receive Date: 20111227
  Receipt Date: 20111214
  Transmission Date: 20120403
  Serious: Yes (Disabling)
  Sender: FDA-Public Use
  Company Number: CA-JNJFOC-20111211087

PATIENT
  Sex: Female
  Weight: 40 kg

DRUGS (9)
  1. REMICADE [Suspect]
     Indication: RHEUMATOID ARTHRITIS
     Route: 042
     Dates: start: 20030423
  2. STALEVO 100 [Concomitant]
  3. RALOXIFENE HCL [Concomitant]
  4. AZILECT [Concomitant]
  5. METHOTREXATE [Concomitant]
  6. LEVOCARB [Concomitant]
  7. CELEBREX [Concomitant]
  8. NITRAZEPAM [Concomitant]
  9. APO-HYDROXYQUINE [Concomitant]

REACTIONS (2)
  - LOWER LIMB FRACTURE [None]
  - FALL [None]
